FAERS Safety Report 7320141-9 (Version None)
Quarter: 2011Q1

REPORT INFORMATION
  Report Type: 
  Country: None (occurrence: None)
  Receive Date: 20110223
  Receipt Date: 20110223
  Transmission Date: 20110831
  Serious: No
  Sender: FDA-Public Use
  Company Number: None

PATIENT
  Sex: Male

DRUGS (2)
  1. TOPAMAX [Concomitant]
  2. LAMOTRIGINE [Suspect]
     Indication: CONVULSION
     Dosage: 200 MG PO BID
     Route: 048

REACTIONS (1)
  - PRODUCT SUBSTITUTION ISSUE [None]
